FAERS Safety Report 16750190 (Version 8)
Quarter: 2021Q2

REPORT INFORMATION
  Report Type: Spontaneous
  Country: CA (occurrence: CA)
  Receive Date: 20190828
  Receipt Date: 20210513
  Transmission Date: 20210716
  Serious: Yes (Hospitalization, Other)
  Sender: FDA-Public Use
  Company Number: CA-BRISTOL-MYERS SQUIBB COMPANY-BMS-2019-082510

PATIENT
  Sex: Female

DRUGS (19)
  1. REMICADE [Suspect]
     Active Substance: INFLIXIMAB
     Indication: COLITIS
  2. PREDNISONE. [Suspect]
     Active Substance: PREDNISONE
     Indication: COLITIS
     Dosage: 30 MILLIGRAM, QD
     Route: 065
  3. FENTANYL. [Concomitant]
     Active Substance: FENTANYL
     Indication: PRODUCT USED FOR UNKNOWN INDICATION
     Dosage: 50 MICROGRAM
     Route: 042
     Dates: start: 20190315, end: 20190315
  4. FENTANYL. [Concomitant]
     Active Substance: FENTANYL
     Dosage: 3 MILLIGRAM
     Route: 042
  5. IRON [Concomitant]
     Active Substance: IRON
     Indication: PRODUCT USED FOR UNKNOWN INDICATION
     Route: 065
  6. ELIQUIS [Suspect]
     Active Substance: APIXABAN
     Indication: THROMBOSIS PROPHYLAXIS
     Dosage: 2 DOSAGE FORM PER DAY
     Route: 065
  7. STELARA [Suspect]
     Active Substance: USTEKINUMAB
     Indication: COLITIS
  8. CICLOSPORIN [Suspect]
     Active Substance: CYCLOSPORINE
     Indication: COLITIS
  9. PREDNISONE. [Suspect]
     Active Substance: PREDNISONE
     Indication: COLITIS ULCERATIVE
     Dosage: 40 MILLIGRAM, QD
     Route: 065
  10. ENTYVIO [Suspect]
     Active Substance: VEDOLIZUMAB
     Indication: COLITIS ULCERATIVE
  11. XELJANZ [Concomitant]
     Active Substance: TOFACITINIB CITRATE
     Indication: PRODUCT USED FOR UNKNOWN INDICATION
     Dosage: 10 MILLIGRAM, BID
     Route: 065
     Dates: start: 201904
  12. REMICADE [Suspect]
     Active Substance: INFLIXIMAB
     Indication: COLITIS ULCERATIVE
     Dosage: UNK
     Route: 042
  13. STELARA [Suspect]
     Active Substance: USTEKINUMAB
     Indication: COLITIS ULCERATIVE
     Dosage: UNK
     Route: 058
     Dates: end: 20190302
  14. ENTYVIO [Suspect]
     Active Substance: VEDOLIZUMAB
     Indication: COLITIS
     Dosage: UNK
     Route: 042
     Dates: end: 20190302
  15. CALCIUM [Concomitant]
     Active Substance: CALCIUM
     Indication: PRODUCT USED FOR UNKNOWN INDICATION
     Route: 048
  16. CANNABINOIDS NOS [Concomitant]
     Active Substance: CANNABIDIOL
     Indication: PRODUCT USED FOR UNKNOWN INDICATION
     Dosage: 5 MG/ML Q
     Route: 065
  17. VERSED [Concomitant]
     Active Substance: MIDAZOLAM HYDROCHLORIDE
     Indication: PRODUCT USED FOR UNKNOWN INDICATION
     Dosage: 3 MILLIGRAM
     Route: 042
     Dates: start: 20190315
  18. CICLOSPORIN [Suspect]
     Active Substance: CYCLOSPORINE
     Indication: COLITIS ULCERATIVE
     Dosage: UNK
     Route: 065
  19. VITAMIN D [VITAMIN D NOS] [Concomitant]
     Active Substance: VITAMIN D NOS
     Indication: PRODUCT USED FOR UNKNOWN INDICATION
     Route: 048

REACTIONS (20)
  - Mean platelet volume decreased [Unknown]
  - Uterine leiomyoma [Unknown]
  - Red blood cell count decreased [Unknown]
  - Pulmonary embolism [Unknown]
  - Abdominal lymphadenopathy [Unknown]
  - Platelet count increased [Unknown]
  - Colitis [Unknown]
  - Gamma-glutamyltransferase increased [Unknown]
  - Lymphocyte count decreased [Unknown]
  - Haematochezia [Unknown]
  - Haemoglobin decreased [Unknown]
  - Hypersensitivity [Unknown]
  - C-reactive protein increased [Unknown]
  - Monocyte count decreased [Unknown]
  - Blood cholesterol increased [Unknown]
  - Red cell distribution width increased [Unknown]
  - Colitis ulcerative [Unknown]
  - Haematocrit decreased [Unknown]
  - Mean cell haemoglobin concentration decreased [Unknown]
  - Neutrophil count increased [Unknown]

NARRATIVE: CASE EVENT DATE: 20180430
